FAERS Safety Report 8834101 (Version 1)
Quarter: 2012Q4

REPORT INFORMATION
  Report Type: Spontaneous
  Country: US (occurrence: None)
  Receive Date: 20121011
  Receipt Date: 20121011
  Transmission Date: 20130627
  Serious: Yes (Hospitalization)
  Sender: FDA-Public Use
  Company Number: None

PATIENT
  Age: 40 Year
  Sex: Male
  Weight: 91 kg

DRUGS (1)
  1. METHYLPREDNISOLONE [Suspect]

REACTIONS (12)
  - Meningitis fungal [None]
  - Loss of consciousness [None]
  - Headache [None]
  - Sluggishness [None]
  - Feeling abnormal [None]
  - Tremor [None]
  - CSF test abnormal [None]
  - Pleocytosis [None]
  - Protein total increased [None]
  - Product contamination microbial [None]
  - Uveitis [None]
  - Liver injury [None]
